FAERS Safety Report 4865953-6 (Version None)
Quarter: 2005Q4

REPORT INFORMATION
  Report Type: 
  Country: None (occurrence: None)
  Receive Date: 20051226
  Receipt Date: 20051216
  Transmission Date: 20060501
  Serious: Yes (Life-Threatening)
  Sender: FDA-Public Use
  Company Number: JP-AVENTIS-200513849JP

PATIENT
  Age: 61 Year
  Sex: Male
  Weight: 57 kg

DRUGS (13)
  1. LASIX [Suspect]
     Route: 048
     Dates: start: 20051028
  2. ANCARON [Suspect]
     Route: 048
     Dates: start: 20001117, end: 20010425
  3. ANCARON [Suspect]
     Route: 048
     Dates: start: 20010426, end: 20050818
  4. TENORMIN [Suspect]
     Route: 048
  5. ZESTRIL [Suspect]
     Route: 048
  6. MUCODYNE [Suspect]
     Route: 048
  7. PREDONINE [Suspect]
     Route: 048
     Dates: start: 20050916, end: 20051027
  8. PREDONINE [Suspect]
     Route: 048
     Dates: start: 20051028, end: 20051103
  9. PREDNISOLONE [Suspect]
     Route: 048
     Dates: start: 20051104, end: 20051110
  10. PREDNISOLONE [Suspect]
     Route: 048
     Dates: start: 20051111, end: 20051211
  11. PREDNISOLONE [Suspect]
     Route: 048
     Dates: start: 20051212, end: 20051215
  12. PREDNISOLONE [Suspect]
     Route: 048
     Dates: start: 20051216
  13. MERCAZOLE [Suspect]
     Route: 048

REACTIONS (2)
  - DIARRHOEA [None]
  - HYPERTHYROIDISM [None]
